FAERS Safety Report 5127216-3 (Version None)
Quarter: 2006Q4

REPORT INFORMATION
  Report Type: 
  Country: None (occurrence: None)
  Receive Date: 20061010
  Receipt Date: 20060927
  Transmission Date: 20070319
  Serious: Yes (Other)
  Sender: FDA-Public Use
  Company Number: 230468

PATIENT
  Age: 60 Year
  Sex: Female

DRUGS (1)
  1. RITUXAN [Suspect]
     Indication: LYMPHOMA

REACTIONS (5)
  - BLINDNESS [None]
  - DEAFNESS [None]
  - GUILLAIN-BARRE SYNDROME [None]
  - LYMPHADENOPATHY [None]
  - PARALYSIS [None]
